FAERS Safety Report 4524396-5 (Version None)
Quarter: 2004Q4

REPORT INFORMATION
  Report Type: 
  Country: None (occurrence: None)
  Receive Date: 20041123
  Receipt Date: 20040401
  Transmission Date: 20050328
  Serious: Yes (Life-Threatening)
  Sender: FDA-Public Use
  Company Number: NSADSS2002029202

PATIENT
  Age: 34 Year
  Sex: Female
  Weight: 103.4201 kg

DRUGS (15)
  1. PROPULSID [Suspect]
     Indication: DYSPEPSIA
     Dosage: 1 DOSE(S), 1 IN 1 DAY
     Dates: start: 19940101
  2. PROPULSID [Suspect]
     Indication: DRUG USE FOR UNKNOWN INDICATION
     Dosage: 20 MG, 2 IN 1 DAY, ORAL
     Route: 048
     Dates: start: 19960101, end: 19981110
  3. LASIX [Concomitant]
  4. PRILOSEC [Concomitant]
  5. PAXIL [Concomitant]
  6. ELAVIL [Concomitant]
  7. VERAPAMIL [Concomitant]
  8. SALSALATE (SALSALATE) [Concomitant]
  9. ARTHROTEC [Concomitant]
  10. ZOLOFT [Concomitant]
  11. DESOGEN (DOFAMIUM CHLORIDE) [Concomitant]
  12. NITROGLYCERINE (GLYCERYL TRINITRATE) [Concomitant]
  13. ALBUTEROL [Concomitant]
  14. DARVOCET [Concomitant]
  15. POTASSIUM (POTASSIUM) [Concomitant]

REACTIONS (6)
  - ACCOMMODATION DISORDER [None]
  - ANXIETY [None]
  - CHEST PAIN [None]
  - DEPRESSION [None]
  - ELECTROCARDIOGRAM QT PROLONGED [None]
  - MEDICATION ERROR [None]
